FAERS Safety Report 8967347 (Version 2)
Quarter: 2012Q4

REPORT INFORMATION
  Report Type: 
  Country: BR (occurrence: BR)
  Receive Date: 20121214
  Receipt Date: 20121224
  Transmission Date: 20130627
  Serious: Yes (Other)
  Sender: FDA-Public Use
  Company Number: BR-COVIDIEN/TYCO HEALTHCARE/MALLINCKRODT-T201204330

PATIENT
  Sex: Male

DRUGS (1)
  1. EXALGO EXTENDED RELEASE [Suspect]
     Indication: MULTIPLE SCLEROSIS
     Dosage: 32 mg, UNK
     Route: 048
     Dates: start: 201204

REACTIONS (3)
  - Drug dependence [Unknown]
  - Drug withdrawal convulsions [Unknown]
  - Irritability [Unknown]
